FAERS Safety Report 12434876 (Version 1)
Quarter: 2016Q2

REPORT INFORMATION
  Report Type: Spontaneous
  Country: FR (occurrence: FR)
  Receive Date: 20160603
  Receipt Date: 20160603
  Transmission Date: 20160815
  Serious: Yes (Death, Other)
  Sender: FDA-Public Use
  Company Number: PHHY2016FR052875

PATIENT
  Age: 55 Year
  Sex: Female
  Weight: 53 kg

DRUGS (4)
  1. ZYKADIA [Suspect]
     Active Substance: CERITINIB
     Indication: LUNG CANCER METASTATIC
     Dosage: 3 DF, QD
     Route: 048
     Dates: start: 20150814
  2. ZYKADIA [Suspect]
     Active Substance: CERITINIB
     Dosage: 5 DF, QD
     Route: 048
     Dates: start: 20151015
  3. ZYKADIA [Suspect]
     Active Substance: CERITINIB
     Dosage: 4 DF, QD
     Route: 048
  4. ZYKADIA [Suspect]
     Active Substance: CERITINIB
     Dosage: 3 DF, QD
     Route: 048
     Dates: start: 201603

REACTIONS (5)
  - Renal failure [Not Recovered/Not Resolved]
  - Lung cancer metastatic [Fatal]
  - Malignant neoplasm progression [Fatal]
  - Hepatic function abnormal [Unknown]
  - Altered state of consciousness [Unknown]

NARRATIVE: CASE EVENT DATE: 20160306
